FAERS Safety Report 10044364 (Version 2)
Quarter: 2014Q1

REPORT INFORMATION
  Report Type: Report from Study
  Country: BE (occurrence: BE)
  Receive Date: 20140328
  Receipt Date: 20140328
  Transmission Date: 20141002
  Serious: Yes (Death)
  Sender: FDA-Public Use
  Company Number: BE-SANOFI-AVENTIS-2013SA074925

PATIENT
  Age: 56 Year
  Sex: Female

DRUGS (9)
  1. DOCETAXEL [Suspect]
     Indication: BREAST CANCER
     Dosage: FORM: VIAL
     Route: 042
     Dates: start: 20100722
  2. DOCETAXEL [Suspect]
     Indication: BREAST CANCER
     Dosage: FORM: VIAL
     Route: 042
     Dates: start: 20101110
  3. CARBOPLATIN [Suspect]
     Indication: BREAST CANCER
     Dosage: FORM: VIAL
     Route: 042
     Dates: start: 20100722
  4. CARBOPLATIN [Suspect]
     Indication: BREAST CANCER
     Dosage: FORM: VIAL?TOTAL DOSE: 6 AUC (1230 MG)
     Route: 042
     Dates: start: 20101110
  5. TRASTUZUMAB [Suspect]
     Indication: BREAST CANCER
     Dosage: FORM: VIAL
     Route: 042
     Dates: start: 20110706
  6. TRASTUZUMAB [Suspect]
     Indication: BREAST CANCER
     Dosage: FORM: VIAL?TOTAL DOSE: 570 MG
     Route: 042
     Dates: start: 20100722
  7. TRASTUZUMAB [Suspect]
     Indication: BREAST CANCER
     Dosage: FORM: VIAL
     Route: 042
  8. BEVACIZUMAB [Suspect]
     Indication: BREAST CANCER
     Dosage: FORM: VIAL??TOTAL DOSE: 1230 MG
     Route: 042
     Dates: start: 20100722
  9. BEVACIZUMAB [Suspect]
     Indication: BREAST CANCER
     Dosage: FORM: VIAL
     Route: 042
     Dates: start: 20110210

REACTIONS (1)
  - Acute lymphocytic leukaemia [Fatal]
